FAERS Safety Report 11755615 (Version 1)
Quarter: 2015Q4

REPORT INFORMATION
  Report Type: Spontaneous
  Country: JP (occurrence: JP)
  Receive Date: 20151119
  Receipt Date: 20151119
  Transmission Date: 20160304
  Serious: Yes (Other)
  Sender: FDA-Public Use
  Company Number: JP-WARNER CHILCOTT, LLC-1044438

PATIENT
  Age: 71 Year
  Sex: Female

DRUGS (8)
  1. NEUROTROPIN [Concomitant]
     Active Substance: NEUROTROPIN
  2. SELBEX [Concomitant]
     Active Substance: TEPRENONE
  3. ACTONEL [Suspect]
     Active Substance: RISEDRONATE SODIUM
     Indication: OSTEOPOROSIS
     Route: 048
     Dates: start: 20151027, end: 20151027
  4. CELECOX [Concomitant]
     Active Substance: CELECOXIB
  5. SHAKUYAKUKANZOTO [Concomitant]
     Active Substance: HERBALS
  6. VITAMIN D AND ANALOGUES [Concomitant]
     Active Substance: CHOLECALCIFEROL
  7. INSULIN [Concomitant]
     Active Substance: INSULIN NOS
  8. OPALMON [Concomitant]
     Active Substance: LIMAPROST

REACTIONS (1)
  - Blood glucose increased [Recovered/Resolved]
